FAERS Safety Report 6234950-0 (Version None)
Quarter: 2009Q2

REPORT INFORMATION
  Report Type: 
  Country: None (occurrence: None)
  Receive Date: 20090618
  Receipt Date: 20090609
  Transmission Date: 20091009
  Serious: Yes (Death, Life-Threatening)
  Sender: FDA-Public Use
  Company Number: B0578760A

PATIENT
  Sex: Female

DRUGS (7)
  1. FONDAPARINUX [Suspect]
     Indication: ACUTE CORONARY SYNDROME
     Route: 058
     Dates: start: 20090603
  2. UNFRACTIONATED HEPARIN [Suspect]
     Indication: ACUTE CORONARY SYNDROME
     Dates: start: 20090603
  3. CEFAZOLIN [Suspect]
     Dosage: 1G PER DAY
     Route: 042
  4. GENTAMYCIN SULFATE [Suspect]
     Dosage: 80MG PER DAY
     Route: 042
  5. ASPIRIN [Suspect]
     Dosage: 150MG PER DAY
  6. CLOPIDOGREL [Suspect]
     Dosage: 75MG PER DAY
  7. SORBITRATE [Suspect]
     Dosage: 10MG PER DAY

REACTIONS (4)
  - ARRHYTHMIA [None]
  - CARDIAC ARREST [None]
  - CATHETER THROMBOSIS [None]
  - HYPOTENSION [None]
